FAERS Safety Report 21313741 (Version 1)
Quarter: 2022Q3

REPORT INFORMATION
  Report Type: Spontaneous
  Country: US (occurrence: None)
  Receive Date: 20220909
  Receipt Date: 20220909
  Transmission Date: 20221027
  Serious: Yes (Other)
  Sender: FDA-Public Use
  Company Number: None

PATIENT
  Age: 59 Year
  Sex: Female
  Weight: 56.7 kg

DRUGS (2)
  1. ALBUTEROL SULFATE [Suspect]
     Active Substance: ALBUTEROL SULFATE
  2. DULERA INHALER 200MCG [Concomitant]

REACTIONS (6)
  - Product substitution issue [None]
  - Product quality issue [None]
  - Manufacturing issue [None]
  - Product design issue [None]
  - Drug ineffective [None]
  - Anxiety [None]
